FAERS Safety Report 6371541-5 (Version None)
Quarter: 2009Q3

REPORT INFORMATION
  Report Type: 
  Country: None (occurrence: None)
  Receive Date: 20090923
  Receipt Date: 20080227
  Transmission Date: 20100115
  Serious: Yes (Other)
  Sender: FDA-Public Use
  Company Number: US-ASTRAZENECA-2007UW27803

PATIENT
  Age: 41 Year
  Sex: Female
  Weight: 104.3 kg

DRUGS (21)
  1. SEROQUEL [Suspect]
     Indication: BIPOLAR DISORDER
     Dosage: VARIOUS (INCLUDING BUT NOT LIMITED TO 100MG, 300MG)
     Route: 048
     Dates: start: 19960101, end: 20061101
  2. SEROQUEL [Suspect]
     Indication: DEPRESSION
     Dosage: VARIOUS (INCLUDING BUT NOT LIMITED TO 100MG, 300MG)
     Route: 048
     Dates: start: 19960101, end: 20061101
  3. SEROQUEL [Suspect]
     Dosage: 25 MG- 600 MG
     Route: 048
  4. SEROQUEL [Suspect]
     Dosage: 25 MG- 600 MG
     Route: 048
  5. RISPERDAL [Concomitant]
  6. ZYPREXA [Concomitant]
  7. DEPAKOTE [Concomitant]
  8. AMBIEN [Concomitant]
  9. IBUPROFEN [Concomitant]
  10. TOPAMAX [Concomitant]
  11. HALOPERIDOL [Concomitant]
  12. LITHIUM [Concomitant]
  13. RANITIDINE [Concomitant]
  14. NEURONTIN [Concomitant]
  15. CHLORHEXIDINE GLUCONATE [Concomitant]
  16. BENADRYL [Concomitant]
  17. CLOZARIL [Concomitant]
  18. METFORMIN HCL [Concomitant]
  19. VALPROIC ACID [Concomitant]
  20. CELEXA [Concomitant]
  21. CLOPIDOGREL [Concomitant]

REACTIONS (4)
  - CEREBROVASCULAR ACCIDENT [None]
  - DIABETES MELLITUS [None]
  - ILL-DEFINED DISORDER [None]
  - SUICIDAL IDEATION [None]
